FAERS Safety Report 24415224 (Version 2)
Quarter: 2025Q1

REPORT INFORMATION
  Report Type: Report from Study
  Country: CO (occurrence: CO)
  Receive Date: 20241009
  Receipt Date: 20250107
  Transmission Date: 20250408
  Serious: Yes (Other)
  Sender: TAKEDA
  Company Number: CO-TAKEDA-2024TUS035284

PATIENT
  Age: 43 Year
  Sex: Female
  Weight: 75 kg

DRUGS (1)
  1. VEDOLIZUMAB [Suspect]
     Active Substance: VEDOLIZUMAB
     Indication: Colitis ulcerative

REACTIONS (11)
  - Rectal haemorrhage [Recovered/Resolved]
  - Stress [Unknown]
  - Pain [Recovered/Resolved]
  - Malaise [Recovered/Resolved]
  - Gastrointestinal inflammation [Unknown]
  - Influenza like illness [Unknown]
  - Abdominal pain [Unknown]
  - Rhinorrhoea [Recovered/Resolved]
  - Ear pain [Recovered/Resolved]
  - Headache [Recovered/Resolved]
  - Pyrexia [Recovered/Resolved]

NARRATIVE: CASE EVENT DATE: 20240404
